FAERS Safety Report 23887710 (Version 1)
Quarter: 2024Q2

REPORT INFORMATION
  Report Type: Other
  Country: DE (occurrence: None)
  Receive Date: 20240523
  Receipt Date: 20240523
  Transmission Date: 20240716
  Serious: Yes (Hospitalization)
  Sender: FDA-Public Use
  Company Number: DE-ROCHE-3428497

PATIENT
  Age: 52 Year
  Sex: Female
  Weight: 59.2 kg

DRUGS (6)
  1. EVRYSDI [Suspect]
     Active Substance: RISDIPLAM
     Indication: Spinal muscular atrophy
     Dosage: LAST DOSE ADMINISTRATION 06/SEP/2023, 15/MAY/2024
     Route: 048
     Dates: start: 20220805
  2. METOPROLOL [Concomitant]
     Active Substance: METOPROLOL
  3. RAMIPRIL [Concomitant]
     Active Substance: RAMIPRIL
  4. IBUPROFEN [Concomitant]
     Active Substance: IBUPROFEN
     Dates: start: 202007
  5. CHOLECALCIFEROL [Concomitant]
     Active Substance: CHOLECALCIFEROL
     Dates: start: 202107
  6. HYDROCHLOROTHIAZIDE [Concomitant]
     Active Substance: HYDROCHLOROTHIAZIDE

REACTIONS (2)
  - Upper respiratory tract infection [Recovered/Resolved]
  - Heavy menstrual bleeding [Recovered/Resolved]

NARRATIVE: CASE EVENT DATE: 20230826
